FAERS Safety Report 9736299 (Version 2)
Quarter: 2013Q4

REPORT INFORMATION
  Report Type: Spontaneous
  Country: FR (occurrence: FR)
  Receive Date: 20131206
  Receipt Date: 20131211
  Transmission Date: 20140711
  Serious: Yes (Hospitalization)
  Sender: FDA-Public Use
  Company Number: FR-ROCHE-1310067

PATIENT
  Sex: Male
  Weight: 70 kg

DRUGS (9)
  1. ROACTEMRA [Suspect]
     Indication: RHEUMATOID ARTHRITIS
     Route: 042
     Dates: start: 20121011, end: 20130531
  2. NOVONORM [Concomitant]
     Indication: DIABETES MELLITUS
     Route: 048
  3. CARDENSIEL [Concomitant]
     Indication: MYOCARDIAL ISCHAEMIA
     Route: 048
  4. CORTANCYL [Concomitant]
     Indication: RHEUMATOID ARTHRITIS
     Route: 048
  5. KARDEGIC [Concomitant]
     Route: 048
  6. CRESTOR [Concomitant]
     Indication: DYSLIPIDAEMIA
  7. CRESTOR [Concomitant]
     Indication: MYOCARDIAL ISCHAEMIA
  8. DIAMICRON [Concomitant]
     Indication: DIABETES MELLITUS
  9. TRIATEC (FRANCE) [Concomitant]
     Indication: HYPERTENSION

REACTIONS (1)
  - Cutaneous vasculitis [Recovered/Resolved]
